FAERS Safety Report 16812671 (Version 2)
Quarter: 2020Q1

REPORT INFORMATION
  Report Type: Spontaneous
  Country: FR (occurrence: FR)
  Receive Date: 20190916
  Receipt Date: 20200114
  Transmission Date: 20200409
  Serious: Yes (Hospitalization, Other)
  Sender: FDA-Public Use
  Company Number: PHHY2019FR210318

PATIENT

DRUGS (9)
  1. ADIAZINE [Suspect]
     Active Substance: SULFADIAZINE
     Indication: CEREBRAL TOXOPLASMOSIS
     Dosage: 12 DF, QD (3 DF, QID)
     Route: 048
     Dates: start: 20190806, end: 20190823
  2. PARACETAMOL [Suspect]
     Active Substance: ACETAMINOPHEN
     Indication: PAIN
     Dosage: 1 G, PRN (1GX3/D)
     Route: 048
     Dates: start: 20190806
  3. MALOCIDE (PYRIMETHAMINE) [Suspect]
     Active Substance: PYRIMETHAMINE
     Indication: CEREBRAL TOXOPLASMOSIS
     Dosage: 50 MG, QD
     Route: 048
     Dates: start: 20190806
  4. ADIAZINE [Suspect]
     Active Substance: SULFADIAZINE
     Dosage: 3 DF, Q6H (3 DF, QID)
     Route: 048
     Dates: start: 20190806, end: 20190823
  5. ATARAX [HYDROXYZINE EMBONATE] [Suspect]
     Active Substance: HYDROXYZINE PAMOATE
     Indication: INSOMNIA
  6. TRIUMEQ [Suspect]
     Active Substance: ABACAVIR SULFATE\DOLUTEGRAVIR SODIUM\LAMIVUDINE
     Indication: HIV INFECTION
     Dosage: 1 DF, QD
     Route: 048
     Dates: start: 20190825, end: 20190828
  7. ATARAX [HYDROXYZINE EMBONATE] [Suspect]
     Active Substance: HYDROXYZINE PAMOATE
     Indication: ANXIETY
     Dosage: 25 MG, UNK
     Route: 054
     Dates: start: 20190806
  8. ADIAZINE [Suspect]
     Active Substance: SULFADIAZINE
     Dosage: 8 DF, QD (2 DF, QID)
     Route: 048
     Dates: start: 20190823
  9. ADIAZINE [Suspect]
     Active Substance: SULFADIAZINE
     Dosage: 2 DF, Q6H (2 DF, QID)
     Route: 065

REACTIONS (6)
  - Herpes zoster [Unknown]
  - Thrombocytopenia [Unknown]
  - Leukopenia [Unknown]
  - Purpura [Unknown]
  - Immune thrombocytopenic purpura [Unknown]
  - Neutropenia [Unknown]

NARRATIVE: CASE EVENT DATE: 20190827
